FAERS Safety Report 25578309 (Version 1)
Quarter: 2025Q3

REPORT INFORMATION
  Report Type: Spontaneous
  Country: US (occurrence: None)
  Receive Date: 20250718
  Receipt Date: 20250718
  Transmission Date: 20251021
  Serious: Yes (Hospitalization)
  Sender: FDA-CTU
  Company Number: None

PATIENT
  Sex: Female

DRUGS (1)
  1. OPSUMIT [Suspect]
     Active Substance: MACITENTAN
     Indication: Pulmonary hypertension
     Dosage: 10 MG DILY ORAL
     Route: 048

REACTIONS (5)
  - Dyspnoea [None]
  - Oxygen saturation decreased [None]
  - Peripheral swelling [None]
  - Joint swelling [None]
  - Peripheral swelling [None]
